FAERS Safety Report 15575238 (Version 1)
Quarter: 2018Q4

REPORT INFORMATION
  Report Type: Spontaneous
  Country: US (occurrence: US)
  Receive Date: 20181101
  Receipt Date: 20181101
  Transmission Date: 20190205
  Serious: Yes (Disabling, Other)
  Sender: FDA-Public Use
  Company Number: None

PATIENT
  Age: 65 Year
  Sex: Female
  Weight: 68.85 kg

DRUGS (14)
  1. EYLEA [Suspect]
     Active Substance: AFLIBERCEPT
     Indication: MACULAR DEGENERATION
     Dosage: ?          OTHER FREQUENCY:ONCE A MONTH;?
     Route: 047
     Dates: start: 20181018
  2. MOBIC [Concomitant]
     Active Substance: MELOXICAM
  3. LOSARTIN [Concomitant]
     Active Substance: LOSARTAN
  4. PRILOSEC [Concomitant]
     Active Substance: OMEPRAZOLE MAGNESIUM
  5. METFORMIN [Concomitant]
     Active Substance: METFORMIN HYDROCHLORIDE
  6. METOPROLOL. [Concomitant]
     Active Substance: METOPROLOL
  7. CALCIUM [Concomitant]
     Active Substance: CALCIUM
  8. CYMBALTA [Concomitant]
     Active Substance: DULOXETINE HYDROCHLORIDE
  9. VITAMIN B12 [Concomitant]
     Active Substance: CYANOCOBALAMIN
  10. L-LYSINE [Concomitant]
     Active Substance: LYSINE
  11. BIOTIN [Concomitant]
     Active Substance: BIOTIN
  12. PRESERVISION [Concomitant]
     Active Substance: MINERALS\VITAMINS
  13. VITAMIN D [Concomitant]
     Active Substance: CHOLECALCIFEROL
  14. TYLENOL [Concomitant]
     Active Substance: ACETAMINOPHEN

REACTIONS (7)
  - Eye discharge [None]
  - Blindness unilateral [None]
  - Vitreous floaters [None]
  - Eye pain [None]
  - Endophthalmitis [None]
  - Vision blurred [None]
  - Purulent discharge [None]

NARRATIVE: CASE EVENT DATE: 20181021
